FAERS Safety Report 24143062 (Version 2)
Quarter: 2024Q3

REPORT INFORMATION
  Report Type: Spontaneous
  Country: FR (occurrence: FR)
  Receive Date: 20240726
  Receipt Date: 20240819
  Transmission Date: 20241017
  Serious: Yes (Life-Threatening)
  Sender: TEVA
  Company Number: None

PATIENT
  Age: 3 Year
  Sex: Female

DRUGS (3)
  1. BROMAZEPAM [Suspect]
     Active Substance: BROMAZEPAM
     Indication: Medication error
     Route: 048
     Dates: start: 20240531, end: 20240531
  2. HYDROCHLOROTHIAZIDE [Suspect]
     Active Substance: HYDROCHLOROTHIAZIDE
     Indication: Medication error
     Route: 048
     Dates: start: 20240531, end: 20240531
  3. IRBESARTAN [Suspect]
     Active Substance: IRBESARTAN
     Indication: Medication error
     Route: 048
     Dates: start: 20240531, end: 20240531

REACTIONS (2)
  - Medication error [Recovered/Resolved]
  - Disturbance in attention [Recovered/Resolved]

NARRATIVE: CASE EVENT DATE: 20240531
